FAERS Safety Report 4806426-6 (Version None)
Quarter: 2005Q4

REPORT INFORMATION
  Report Type: 
  Country: None (occurrence: None)
  Receive Date: 20051019
  Receipt Date: 20051007
  Transmission Date: 20060501
  Serious: Yes (Hospitalization)
  Sender: FDA-Public Use
  Company Number: 2005PV002843

PATIENT
  Age: 67 Year
  Sex: Female
  Weight: 78.9259 kg

DRUGS (10)
  1. BYETTA [Suspect]
     Indication: DIABETES MELLITUS NON-INSULIN-DEPENDENT
     Dosage: 5 MCG; BID; SC
     Route: 058
     Dates: start: 20050922, end: 20050923
  2. GLIPIZIDE [Concomitant]
  3. PRAVACHOL [Concomitant]
  4. VYTORIN [Concomitant]
  5. ATENOLOL [Concomitant]
  6. GLYBURIDE [Concomitant]
  7. HYDROCHLOROTHIAZIDE [Concomitant]
  8. LISINOPRIL [Concomitant]
  9. SYNTHROID [Concomitant]
  10. ASPIRIN [Concomitant]

REACTIONS (10)
  - ATRIAL FIBRILLATION [None]
  - ATRIAL HYPERTROPHY [None]
  - DILATATION ATRIAL [None]
  - HEART RATE INCREASED [None]
  - HYPERTENSION [None]
  - HYPOGLYCAEMIA [None]
  - INTERNATIONAL NORMALISED RATIO INCREASED [None]
  - NAUSEA [None]
  - SINUS BRADYCARDIA [None]
  - VOMITING [None]
